FAERS Safety Report 21505271 (Version 1)
Quarter: 2022Q4

REPORT INFORMATION
  Report Type: Spontaneous
  Country: DE (occurrence: DE)
  Receive Date: 20221026
  Receipt Date: 20221026
  Transmission Date: 20230113
  Serious: No
  Sender: FDA-Public Use
  Company Number: DE-ALKEM LABORATORIES LIMITED-DE-ALKEM-2022-10281

PATIENT
  Age: 37 Year
  Sex: Female
  Weight: 74 kg

DRUGS (4)
  1. FINGOLIMOD [Suspect]
     Active Substance: FINGOLIMOD
     Indication: Relapsing-remitting multiple sclerosis
     Dosage: UNK
     Route: 048
     Dates: start: 20210923
  2. COMIRNATY [Concomitant]
     Active Substance: TOZINAMERAN
     Indication: COVID-19 prophylaxis
     Dosage: 10 MICROGRAM
     Route: 030
     Dates: start: 20210526, end: 20210526
  3. COMIRNATY [Concomitant]
     Active Substance: TOZINAMERAN
     Dosage: 10 MICROGRAM
     Route: 030
     Dates: start: 20210707, end: 20210707
  4. SHINGRIX [Concomitant]
     Active Substance: RECOMBINANT VARICELLA ZOSTER VIRUS (VZV) GLYCOPROTEIN E
     Indication: Herpes zoster immunisation
     Dosage: 0.5 MILLILITER
     Route: 030
     Dates: start: 20211215, end: 20211215

REACTIONS (1)
  - Lymphopenia [Recovered/Resolved]

NARRATIVE: CASE EVENT DATE: 20211021
